FAERS Safety Report 8597362-0 (Version None)
Quarter: 2012Q3

REPORT INFORMATION
  Report Type: 
  Country: None (occurrence: None)
  Receive Date: 20120816
  Receipt Date: 20120814
  Transmission Date: 20120928
  Serious: No
  Sender: FDA-Public Use
  Company Number: US-PFIZER INC-2012088503

PATIENT
  Age: 31 Year
  Sex: Female
  Weight: 61.2 kg

DRUGS (5)
  1. ZOLOFT [Suspect]
     Indication: DEPRESSION
  2. LORATADINE [Concomitant]
     Dosage: 10 MG, 1X/DAY
  3. ZOLOFT [Suspect]
     Indication: ANXIETY
     Dosage: 100 MG, 1X/DAY
     Route: 048
     Dates: start: 20000101
  4. MULTI-VITAMINS [Concomitant]
     Dosage: UNK, 1X/DAY
  5. LUTERA [Concomitant]
     Indication: CONTRACEPTION
     Dosage: UNK

REACTIONS (1)
  - FEELING ABNORMAL [None]
